FAERS Safety Report 5756258-X (Version None)
Quarter: 2008Q2

REPORT INFORMATION
  Report Type: 
  Country: None (occurrence: None)
  Receive Date: 20080602
  Receipt Date: 20080522
  Transmission Date: 20081010
  Serious: Yes (Other)
  Sender: FDA-Public Use
  Company Number: US-PFIZER INC-2008044509

PATIENT
  Sex: Male

DRUGS (1)
  1. DETROL LA [Suspect]
     Indication: DYSURIA
     Dates: start: 20080501, end: 20080501

REACTIONS (2)
  - BLOOD URINE PRESENT [None]
  - POLLAKIURIA [None]
